FAERS Safety Report 25287254 (Version 1)
Quarter: 2025Q2

REPORT INFORMATION
  Report Type: Spontaneous
  Country: FR (occurrence: FR)
  Receive Date: 20250509
  Receipt Date: 20250509
  Transmission Date: 20250717
  Serious: Yes (Other)
  Sender: BAXTER
  Company Number: None

PATIENT
  Age: 71 Year
  Sex: Female

DRUGS (7)
  1. PROPOFOL [Suspect]
     Active Substance: PROPOFOL
     Indication: General anaesthesia
     Dosage: UNK, QD
     Route: 042
     Dates: start: 20241104, end: 20241104
  2. ATRACURIUM [Suspect]
     Active Substance: ATRACURIUM
     Indication: General anaesthesia
     Dosage: UNK UNK, QD
     Route: 042
     Dates: start: 20241104, end: 20241104
  3. SUFENTANIL [Suspect]
     Active Substance: SUFENTANIL
     Indication: General anaesthesia
     Dosage: UNK, QD
     Route: 042
     Dates: start: 20241104, end: 20241104
  4. DEXAMETHASONE [Suspect]
     Active Substance: DEXAMETHASONE
     Indication: General anaesthesia
     Dosage: UNK, QD
     Route: 042
     Dates: start: 20241104, end: 20241104
  5. LIDOCAINE [Suspect]
     Active Substance: LIDOCAINE
     Indication: General anaesthesia
     Route: 042
     Dates: start: 20241104, end: 20241104
  6. EPINEPHRINE [Concomitant]
     Active Substance: EPINEPHRINE
     Dosage: UNK, QD
     Route: 041
     Dates: start: 20241104, end: 20241104
  7. NOREPINEPHRINE BITARTRATE [Concomitant]
     Active Substance: NOREPINEPHRINE BITARTRATE
     Dosage: UNK, QD
     Route: 042
     Dates: start: 20241104, end: 20241104

REACTIONS (2)
  - Shock [Recovered/Resolved]
  - Hypotension [Recovered/Resolved]

NARRATIVE: CASE EVENT DATE: 20241104
